FAERS Safety Report 17048624 (Version 1)
Quarter: 2019Q4

REPORT INFORMATION
  Report Type: Spontaneous
  Country: US (occurrence: US)
  Receive Date: 20191119
  Receipt Date: 20191119
  Transmission Date: 20200122
  Serious: Yes (Other)
  Sender: FDA-Public Use
  Company Number: US-ELI_LILLY_AND_COMPANY-US201911005048

PATIENT
  Age: 77 Year
  Sex: Male

DRUGS (4)
  1. HUMULIN R U-500 [Suspect]
     Active Substance: INSULIN HUMAN
     Dosage: 30 INTERNATIONAL UNIT, TID
     Route: 065
  2. ELIQUIS [Concomitant]
     Active Substance: APIXABAN
     Indication: CARDIAC DISORDER
  3. HUMULIN R U-500 [Suspect]
     Active Substance: INSULIN HUMAN
     Indication: PRODUCT USED FOR UNKNOWN INDICATION
     Dosage: 30 INTERNATIONAL UNIT, TID
     Route: 065
     Dates: start: 2012
  4. LASIX [Concomitant]
     Active Substance: FUROSEMIDE
     Indication: CARDIAC DISORDER

REACTIONS (6)
  - Blood glucose increased [Unknown]
  - Drug ineffective [Unknown]
  - Cardiac disorder [Unknown]
  - Fear [Unknown]
  - Insulin resistance [Unknown]
  - Eye haemorrhage [Unknown]

NARRATIVE: CASE EVENT DATE: 201905
